FAERS Safety Report 8137430-0 (Version None)
Quarter: 2012Q1

REPORT INFORMATION
  Report Type: 
  Country: None (occurrence: None)
  Receive Date: 20120209
  Receipt Date: 20120201
  Transmission Date: 20120608
  Serious: Yes (Other)
  Sender: FDA-Public Use
  Company Number: 2012SP001438

PATIENT
  Sex: Male

DRUGS (1)
  1. DESLORATADINE [Suspect]
     Indication: URTICARIA
     Dosage: ;PO   ;PO
     Route: 048

REACTIONS (1)
  - HALLUCINATION [None]
